FAERS Safety Report 15752174 (Version 1)
Quarter: 2018Q4

REPORT INFORMATION
  Report Type: Report from Study
  Country: IE (occurrence: IE)
  Receive Date: 20181221
  Receipt Date: 20181221
  Transmission Date: 20190205
  Serious: Yes (Hospitalization)
  Sender: FDA-Public Use
  Company Number: IE-JNJFOC-20181220085

PATIENT
  Age: 37 Year
  Sex: Male

DRUGS (13)
  1. FUROSEMIDE. [Concomitant]
     Active Substance: FUROSEMIDE
     Route: 050
  2. COVERSYL ARGININE [Concomitant]
     Active Substance: PERINDOPRIL ARGININE
     Route: 050
  3. INVOKANA [Concomitant]
     Active Substance: CANAGLIFLOZIN
     Route: 050
  4. JANUMET [Concomitant]
     Active Substance: METFORMIN HYDROCHLORIDE\SITAGLIPTIN PHOSPHATE
     Route: 050
  5. VIVIOPTAL [Concomitant]
     Route: 050
  6. GLUCOPHAGE [Concomitant]
     Active Substance: METFORMIN HYDROCHLORIDE
     Route: 050
  7. CUBITAN [Concomitant]
     Route: 050
  8. STELARA [Suspect]
     Active Substance: USTEKINUMAB
     Indication: PSORIASIS
     Route: 058
     Dates: start: 20181116
  9. CARDURA [Concomitant]
     Active Substance: DOXAZOSIN MESYLATE
     Route: 050
  10. DIFENE [Concomitant]
     Active Substance: DICLOFENAC SODIUM
     Route: 050
  11. NOVORAPID [Concomitant]
     Active Substance: INSULIN ASPART
     Dosage: 16 UNITS
     Route: 050
  12. LANTUS [Concomitant]
     Active Substance: INSULIN GLARGINE
     Dosage: 48 UNITS
     Route: 050
  13. VIMOVO [Concomitant]
     Active Substance: ESOMEPRAZOLE MAGNESIUM\NAPROXEN
     Route: 050

REACTIONS (1)
  - Respiratory tract infection viral [Recovered/Resolved]

NARRATIVE: CASE EVENT DATE: 20181124
